FAERS Safety Report 4638192-1 (Version None)
Quarter: 2005Q2

REPORT INFORMATION
  Report Type: 
  Country: None (occurrence: None)
  Receive Date: 20050415
  Receipt Date: 20050324
  Transmission Date: 20051028
  Serious: Yes (Other)
  Sender: FDA-Public Use
  Company Number: USA050393998

PATIENT
  Age: 61 Year
  Sex: Female
  Weight: 82 kg

DRUGS (7)
  1. FORTEO [Suspect]
     Indication: OSTEOPOROSIS
     Dosage: 20 UG/1 DAY
     Dates: start: 20041201
  2. MULTI-VITAMIN [Concomitant]
  3. FISH OIL [Concomitant]
  4. CALCIUM GLUCONATE [Concomitant]
  5. NEXIUM [Concomitant]
  6. MAXZIDE [Concomitant]
  7. TOPROL-XL [Concomitant]

REACTIONS (2)
  - BREAST MASS [None]
  - PHARMACEUTICAL PRODUCT COMPLAINT [None]
